FAERS Safety Report 16196777 (Version 2)
Quarter: 2019Q2

REPORT INFORMATION
  Report Type: Spontaneous
  Country: US (occurrence: US)
  Receive Date: 20190415
  Receipt Date: 20190614
  Transmission Date: 20190711
  Serious: No
  Sender: FDA-Public Use
  Company Number: US-GLAXOSMITHKLINE-US2019061862

PATIENT
  Sex: Female

DRUGS (12)
  1. FUROSEMIDE. [Concomitant]
     Active Substance: FUROSEMIDE
     Dosage: 40 MG, QD
  2. METOPROLOL. [Concomitant]
     Active Substance: METOPROLOL
  3. POTASSIUM [Concomitant]
     Active Substance: POTASSIUM
     Dosage: UNK
  4. PROAIR HFA [Concomitant]
     Active Substance: ALBUTEROL SULFATE
     Dosage: UNK
  5. RESVERATROL [Concomitant]
     Active Substance: DIETARY SUPPLEMENT\RESVERATROL
  6. SYNTHROID (LEVOTHYROXIN) [Concomitant]
     Dosage: 100 MG, UNK
  7. ELIQUIS [Concomitant]
     Active Substance: APIXABAN
  8. TRELEGY ELLIPTA [Suspect]
     Active Substance: FLUTICASONE FUROATE\UMECLIDINIUM BROMIDE\VILANTEROL TRIFENATATE
     Indication: ATRIAL FIBRILLATION
  9. ATORVASTATIN [Concomitant]
     Active Substance: ATORVASTATIN
  10. TRELEGY ELLIPTA [Suspect]
     Active Substance: FLUTICASONE FUROATE\UMECLIDINIUM BROMIDE\VILANTEROL TRIFENATATE
     Indication: DYSPNOEA
     Dosage: 2 PUFF(S), 1D
     Route: 055
  11. VITAMIN D3 [Concomitant]
     Active Substance: CHOLECALCIFEROL
     Dosage: UNK
  12. TUMERIC [Concomitant]
     Active Substance: HERBALS\TURMERIC
     Dosage: UNK

REACTIONS (15)
  - Eye pain [Unknown]
  - Feeling abnormal [Unknown]
  - Fluid retention [Unknown]
  - Drug ineffective [Unknown]
  - Mood swings [Unknown]
  - Inappropriate schedule of product administration [Unknown]
  - Dyspnoea [Unknown]
  - Limb discomfort [Unknown]
  - Weight increased [Unknown]
  - Off label use [Unknown]
  - Pain [Unknown]
  - Headache [Unknown]
  - Nervousness [Unknown]
  - Dizziness [Unknown]
  - Product use in unapproved indication [Unknown]
